FAERS Safety Report 6645394-1 (Version None)
Quarter: 2010Q1

REPORT INFORMATION
  Report Type: 
  Country: None (occurrence: None)
  Receive Date: 20100322
  Receipt Date: 20090529
  Transmission Date: 20100710
  Serious: Yes (Hospitalization)
  Sender: FDA-Public Use
  Company Number: JP-ABBOTT-08P-087-0462406-00

PATIENT
  Sex: Male
  Weight: 59 kg

DRUGS (23)
  1. HUMIRA [Suspect]
     Indication: CROHN'S DISEASE
     Route: 058
     Dates: start: 20071218, end: 20090303
  2. HUMIRA [Suspect]
     Route: 058
     Dates: start: 20080804, end: 20090303
  3. PENTASA [Concomitant]
     Indication: CROHN'S DISEASE
     Route: 048
     Dates: start: 20070625, end: 20080703
  4. PENTASA [Concomitant]
     Route: 048
     Dates: start: 20080713, end: 20080718
  5. PENTASA [Concomitant]
     Route: 048
     Dates: start: 20080804, end: 20090308
  6. PENTASA [Concomitant]
     Route: 048
     Dates: start: 20090317
  7. ELENTAL [Concomitant]
     Indication: CROHN'S DISEASE
     Route: 048
     Dates: start: 20080406, end: 20080703
  8. ELENTAL [Concomitant]
     Route: 048
     Dates: start: 20080708, end: 20080709
  9. ELENTAL [Concomitant]
     Route: 048
     Dates: start: 20080710, end: 20080718
  10. ELENTAL [Concomitant]
     Route: 048
     Dates: start: 20080801, end: 20090308
  11. COLONEL [Concomitant]
     Indication: DIARRHOEA
     Route: 048
     Dates: start: 20070625, end: 20080703
  12. COLONEL [Concomitant]
     Route: 048
     Dates: start: 20080713, end: 20080714
  13. COLONEL [Concomitant]
     Route: 048
     Dates: start: 20080804, end: 20090308
  14. COLONEL [Concomitant]
     Dates: start: 20090317
  15. PHELLOBERIN [Concomitant]
     Indication: DIARRHOEA
     Route: 048
     Dates: start: 20070625, end: 20080703
  16. PHELLOBERIN [Concomitant]
     Route: 048
     Dates: start: 20080713, end: 20080718
  17. PHELLOBERIN [Concomitant]
     Route: 048
     Dates: start: 20080804, end: 20090308
  18. FERROMIA [Concomitant]
     Indication: ANAEMIA
     Route: 048
     Dates: start: 20070625, end: 20080703
  19. FERROMIA [Concomitant]
     Route: 048
     Dates: start: 20080713, end: 20080718
  20. FERROMIA [Concomitant]
     Route: 048
     Dates: start: 20080804, end: 20090308
  21. FERROMIA [Concomitant]
     Route: 048
     Dates: start: 20090318
  22. CRAVIT [Concomitant]
     Indication: DRUG USE FOR UNKNOWN INDICATION
     Route: 048
     Dates: start: 20080512, end: 20080703
  23. RESTAMIN [Concomitant]
     Indication: RASH
     Dates: start: 20080129

REACTIONS (1)
  - INTESTINAL OBSTRUCTION [None]
